FAERS Safety Report 6409457-8 (Version None)
Quarter: 2009Q4

REPORT INFORMATION
  Report Type: 
  Country: None (occurrence: None)
  Receive Date: 20091019
  Receipt Date: 20091008
  Transmission Date: 20100525
  Serious: Yes (Life-Threatening)
  Sender: FDA-Public Use
  Company Number: 09-001611

PATIENT
  Age: 12 Year
  Sex: Female

DRUGS (1)
  1. LOESTRIN 24 FE [Suspect]
     Dosage: 20/1000 UG

REACTIONS (5)
  - HEADACHE [None]
  - JUGULAR VEIN THROMBOSIS [None]
  - NAUSEA [None]
  - SINUS DISORDER [None]
  - THROMBOSIS [None]
